FAERS Safety Report 24752743 (Version 2)
Quarter: 2024Q4

REPORT INFORMATION
  Report Type: Spontaneous
  Country: TW (occurrence: TW)
  Receive Date: 20241219
  Receipt Date: 20241230
  Transmission Date: 20250114
  Serious: Yes (Hospitalization)
  Sender: ROCHE
  Company Number: TW-CHUGAI-2024043472

PATIENT
  Age: 62 Year
  Sex: Male
  Weight: 70 kg

DRUGS (13)
  1. ACTEMRA [Suspect]
     Active Substance: TOCILIZUMAB
     Indication: Rheumatoid arthritis
     Dosage: 162 MILLIGRAM, ONCE/2WEEKS
     Route: 050
     Dates: start: 20240715, end: 20241123
  2. QUINE [Concomitant]
     Dosage: PERORAL AGENT
     Route: 048
  3. ARHEUMA [Concomitant]
  4. SYNTAM [Concomitant]
  5. FAMOTIDINE [Concomitant]
     Active Substance: FAMOTIDINE
  6. ASPIRIN [Concomitant]
     Active Substance: ASPIRIN
  7. THROUGH [CAFFEINE;CHLORPHENAMINE MALEATE;PHENYLEPHRINE HYDROCHLORIDE] [Concomitant]
  8. FOLIC ACID [Concomitant]
     Active Substance: FOLIC ACID
  9. KENTAMIN [Concomitant]
  10. PREDNISOLONE [Concomitant]
     Active Substance: PREDNISOLONE
  11. HYDROXYCHLOROQUINE SULFATE [Concomitant]
     Active Substance: HYDROXYCHLOROQUINE SULFATE
  12. LEVOCETIRIZINE DIHYDROCHLORIDE [Concomitant]
     Active Substance: LEVOCETIRIZINE DIHYDROCHLORIDE
  13. BARACLUDE [Concomitant]
     Active Substance: ENTECAVIR

REACTIONS (1)
  - Cerebrovascular accident [Not Recovered/Not Resolved]

NARRATIVE: CASE EVENT DATE: 20241210
